FAERS Safety Report 7176430-4 (Version None)
Quarter: 2010Q4

REPORT INFORMATION
  Report Type: 
  Country: None (occurrence: None)
  Receive Date: 20101220
  Receipt Date: 20101207
  Transmission Date: 20110411
  Serious: Yes (Hospitalization)
  Sender: FDA-Public Use
  Company Number: CL-PFIZER INC-2010167799

PATIENT
  Age: 45 Year
  Sex: Male
  Weight: 76 kg

DRUGS (2)
  1. TEMSIROLIMUS [Suspect]
     Indication: RENAL CANCER
     Dosage: 20 MG, WEEKLY
     Route: 042
     Dates: start: 20091231, end: 20101202
  2. *BEVACIZUMAB [Suspect]
     Indication: RENAL CANCER
     Dosage: 10 MG/KG, 1 TIMES PER 2 WEEKS
     Route: 042
     Dates: start: 20091231, end: 20101202

REACTIONS (1)
  - COLITIS [None]
